FAERS Safety Report 19772018 (Version 1)
Quarter: 2021Q3

REPORT INFORMATION
  Report Type: Report from Study
  Country: None (occurrence: US)
  Receive Date: 20210901
  Receipt Date: 20210901
  Transmission Date: 20211014
  Serious: Yes (Hospitalization)
  Sender: FDA-Public Use
  Company Number: US-ABBVIE-21K-163-4053661-00

PATIENT
  Age: 60 Year
  Sex: Male

DRUGS (2)
  1. ELIQUIS [Concomitant]
     Active Substance: APIXABAN
     Indication: PRODUCT USED FOR UNKNOWN INDICATION
  2. HUMIRA [Suspect]
     Active Substance: ADALIMUMAB
     Indication: CROHN^S DISEASE
     Route: 058
     Dates: start: 20210813

REACTIONS (18)
  - Thrombosis [Unknown]
  - Loss of personal independence in daily activities [Unknown]
  - Malaise [Unknown]
  - Asthenia [Unknown]
  - Blood pressure abnormal [Unknown]
  - Arthralgia [Unknown]
  - Vomiting [Unknown]
  - Constipation [Unknown]
  - Back pain [Unknown]
  - Decreased appetite [Unknown]
  - Chest pain [Unknown]
  - Pulmonary thrombosis [Unknown]
  - Abdominal pain [Unknown]
  - Fatigue [Unknown]
  - Insomnia [Unknown]
  - Abdominal pain upper [Recovering/Resolving]
  - Gastrointestinal sounds abnormal [Unknown]
  - Nausea [Unknown]

NARRATIVE: CASE EVENT DATE: 202108
